FAERS Safety Report 8026382-X (Version None)
Quarter: 2012Q1

REPORT INFORMATION
  Report Type: 
  Country: None (occurrence: None)
  Receive Date: 20120105
  Receipt Date: 20111228
  Transmission Date: 20120608
  Serious: Yes (Other)
  Sender: FDA-Public Use
  Company Number: US-ASTRAZENECA-2011SE21710

PATIENT
  Age: 54 Year
  Sex: Female

DRUGS (3)
  1. SEROQUEL [Suspect]
     Indication: SLEEP DISORDER
     Route: 048
  2. NEXIUM [Suspect]
     Route: 048
  3. PREVACID [Concomitant]

REACTIONS (23)
  - MUSCLE SWELLING [None]
  - BACK DISORDER [None]
  - SCAR [None]
  - GASTROOESOPHAGEAL REFLUX DISEASE [None]
  - ARTHRITIS [None]
  - NECK PAIN [None]
  - GASTRIC DISORDER [None]
  - INTERVERTEBRAL DISC PROTRUSION [None]
  - SCIATICA [None]
  - PARAESTHESIA [None]
  - OEDEMA PERIPHERAL [None]
  - EXOSTOSIS [None]
  - CARPAL TUNNEL SYNDROME [None]
  - JOINT SWELLING [None]
  - MUSCULOSKELETAL DISCOMFORT [None]
  - PERIPHERAL NERVE INJURY [None]
  - NECK INJURY [None]
  - OSTEOPOROSIS [None]
  - ULCER [None]
  - OFF LABEL USE [None]
  - MEDICAL DEVICE COMPLICATION [None]
  - BACK INJURY [None]
  - HEADACHE [None]
